FAERS Safety Report 16019006 (Version 2)
Quarter: 2019Q1

REPORT INFORMATION
  Report Type: Report from Study
  Country: US (occurrence: US)
  Receive Date: 20190228
  Receipt Date: 20190321
  Transmission Date: 20190418
  Serious: Yes (Other)
  Sender: FDA-Public Use
  Company Number: US-RETROPHIN, INC.-2019RTN00004

PATIENT
  Age: 2 Year
  Sex: Male

DRUGS (2)
  1. TPN [Concomitant]
     Active Substance: AMINO ACIDS\DEXTROSE\ELECTROLYTES NOS\SOYBEAN OIL
  2. CHOLIC ACID [Suspect]
     Active Substance: CHOLIC ACID
     Indication: SPINAL MUSCULAR ATROPHY
     Dosage: 50 MG, 2X/DAY
     Route: 048
     Dates: start: 20190106, end: 201902

REACTIONS (4)
  - Gastrointestinal haemorrhage [Unknown]
  - Weight gain poor [Unknown]
  - Abdominal pain [Recovering/Resolving]
  - Malaise [Not Recovered/Not Resolved]

NARRATIVE: CASE EVENT DATE: 2019
